FAERS Safety Report 17690133 (Version 1)
Quarter: 2020Q2

REPORT INFORMATION
  Report Type: Report from Study
  Country: TW (occurrence: TW)
  Receive Date: 20200421
  Receipt Date: 20200421
  Transmission Date: 20200714
  Serious: Yes (Hospitalization, Other)
  Sender: FDA-Public Use
  Company Number: TW-JNJFOC-20200416284

PATIENT
  Age: 71 Year
  Sex: Male
  Weight: 70 kg

DRUGS (1)
  1. STELARA [Suspect]
     Active Substance: USTEKINUMAB
     Indication: PSORIASIS
     Dosage: DOSE: 45 MG/0.5 ML. LAST DOSE WAS GIVEN ON 13-APR-2020
     Route: 058
     Dates: start: 20200316

REACTIONS (6)
  - Atypical pneumonia [Recovered/Resolved]
  - Blood pressure increased [Unknown]
  - Cardiac failure acute [Unknown]
  - Sepsis [Unknown]
  - Chronic obstructive pulmonary disease [Recovered/Resolved]
  - Chronic kidney disease [Unknown]

NARRATIVE: CASE EVENT DATE: 20200326
